FAERS Safety Report 8022395-2 (Version None)
Quarter: 2012Q1

REPORT INFORMATION
  Report Type: 
  Country: None (occurrence: None)
  Receive Date: 20120104
  Receipt Date: 20111222
  Transmission Date: 20120608
  Serious: Yes (Hospitalization)
  Sender: FDA-Public Use
  Company Number: US-MYLANLABS-2011S1026284

PATIENT
  Age: 77 Year
  Sex: Male
  Weight: 67.13 kg

DRUGS (2)
  1. IPRATROPIUM BROMIDE [Suspect]
     Indication: CHRONIC OBSTRUCTIVE PULMONARY DISEASE
     Route: 055
     Dates: start: 20110101
  2. ASMANEX TWISTHALER [Concomitant]
     Indication: CHRONIC OBSTRUCTIVE PULMONARY DISEASE

REACTIONS (5)
  - OROPHARYNGEAL PAIN [None]
  - COUGH [None]
  - BRONCHITIS [None]
  - DYSPHONIA [None]
  - ASTHENIA [None]
